FAERS Safety Report 16677798 (Version 1)
Quarter: 2019Q3

REPORT INFORMATION
  Report Type: Spontaneous
  Country: US (occurrence: US)
  Receive Date: 20190806
  Receipt Date: 20190806
  Transmission Date: 20191004
  Serious: No
  Sender: FDA-Public Use
  Company Number: None

PATIENT
  Age: 58 Year
  Sex: Female
  Weight: 83.25 kg

DRUGS (2)
  1. LEVOTHYROXINE. [Suspect]
     Active Substance: LEVOTHYROXINE
     Indication: PRODUCT USED FOR UNKNOWN INDICATION
     Dosage: ?          QUANTITY:1 TABLET(S);?
     Route: 048
  2. MAGNESIUM [Concomitant]
     Active Substance: MAGNESIUM

REACTIONS (7)
  - Tremor [None]
  - Anxiety [None]
  - Loss of consciousness [None]
  - Diarrhoea [None]
  - Amnesia [None]
  - Palpitations [None]
  - Constipation [None]

NARRATIVE: CASE EVENT DATE: 20190802
